FAERS Safety Report 4845995-7 (Version None)
Quarter: 2005Q4

REPORT INFORMATION
  Report Type: 
  Country: None (occurrence: None)
  Receive Date: 20051206
  Receipt Date: 20050324
  Transmission Date: 20060501
  Serious: Yes (Other)
  Sender: FDA-Public Use
  Company Number: 200511451JP

PATIENT
  Age: 76 Year
  Sex: Female
  Weight: 45.3 kg

DRUGS (14)
  1. ARAVA [Suspect]
     Indication: RHEUMATOID ARTHRITIS
     Route: 048
     Dates: start: 20031112, end: 20031114
  2. ARAVA [Suspect]
     Route: 048
     Dates: start: 20031115, end: 20040205
  3. ARAVA [Suspect]
     Route: 048
     Dates: start: 20040206, end: 20040219
  4. PREDNISOLONE [Concomitant]
     Indication: RHEUMATOID ARTHRITIS
     Route: 048
     Dates: start: 20031106, end: 20031119
  5. AZULFIDINE [Concomitant]
     Indication: RHEUMATOID ARTHRITIS
     Route: 048
     Dates: start: 20031106, end: 20031119
  6. LOXONIN [Concomitant]
     Indication: RHEUMATOID ARTHRITIS
     Route: 048
     Dates: start: 20031106, end: 20031119
  7. MUCOSTA [Concomitant]
     Indication: GASTRITIS
     Dosage: DOSE: 2TABLETS
     Route: 048
     Dates: start: 20031106, end: 20031119
  8. GANATON [Concomitant]
     Indication: GASTRITIS
     Dosage: DOSE: 3TABLETS
     Route: 048
     Dates: start: 20031106, end: 20031119
  9. GASTER [Concomitant]
     Indication: GASTRITIS
     Dosage: DOSE: 2TABLETS
     Route: 048
     Dates: start: 20031106, end: 20031119
  10. ACTONEL [Concomitant]
     Indication: OSTEOPOROSIS
     Route: 048
     Dates: start: 20041120
  11. MEDROL [Concomitant]
     Indication: RHEUMATOID ARTHRITIS
     Route: 048
     Dates: start: 20041120
  12. ALFAROL [Concomitant]
     Indication: OSTEOPOROSIS
     Route: 048
     Dates: start: 20041120
  13. MOBIC [Concomitant]
     Indication: RHEUMATOID ARTHRITIS
     Route: 048
     Dates: start: 20041120
  14. ALLOID [Concomitant]
     Indication: GASTRITIS
     Route: 048
     Dates: start: 20041120

REACTIONS (6)
  - ALANINE AMINOTRANSFERASE INCREASED [None]
  - ASPARTATE AMINOTRANSFERASE INCREASED [None]
  - BLOOD ALKALINE PHOSPHATASE INCREASED [None]
  - BLOOD CHOLESTEROL INCREASED [None]
  - BLOOD LACTATE DEHYDROGENASE INCREASED [None]
  - GAMMA-GLUTAMYLTRANSFERASE INCREASED [None]
